FAERS Safety Report 8485526 (Version 6)
Quarter: 2015Q1

REPORT INFORMATION
  Report Type: Report from Study
  Country: DE (occurrence: DE)
  Receive Date: 20120330
  Receipt Date: 20150130
  Transmission Date: 20150721
  Serious: Yes (Death, Hospitalization)
  Sender: FDA-Public Use
  Company Number: DE-ROCHE-1053879

PATIENT
  Age: 38 Year
  Sex: Male
  Weight: 78 kg

DRUGS (14)
  1. GRANISETRON [Concomitant]
     Active Substance: GRANISETRON
     Dosage: REPORTED: GRANISETRON-HAMEIN. PRN IF NEEDED
     Route: 065
     Dates: start: 20100930, end: 20110304
  2. GRANISETRON [Concomitant]
     Active Substance: GRANISETRON
     Route: 065
  3. DIMENHYDRINAT [Concomitant]
     Active Substance: DIMENHYDRINATE
     Dosage: IF NEEDED
     Route: 065
  4. BEVACIZUMAB [Suspect]
     Active Substance: BEVACIZUMAB
     Indication: GLIOBLASTOMA MULTIFORME
     Dosage: LAST DOSE PRIOR TO SAE: 8 JULY 2011. INFUSION
     Route: 042
  5. MCP AL [Concomitant]
     Route: 065
     Dates: start: 20111213
  6. NOVALGIN [Concomitant]
     Active Substance: METAMIZOLE SODIUM
     Dosage: IF NEEDED
     Route: 065
  7. CERTOPARIN [Concomitant]
     Dosage: TDD: 3000 IE
     Route: 065
     Dates: start: 20110722, end: 20110726
  8. ONDANSETRON [Concomitant]
     Active Substance: ONDANSETRON
     Dosage: WHEN NEEDED
     Route: 065
  9. DEXAMETHASON [Concomitant]
     Active Substance: DEXAMETHASONE
     Route: 065
     Dates: start: 20111213, end: 20120219
  10. PIPERACILLIN [Concomitant]
     Active Substance: PIPERACILLIN
     Dosage: TDD: 12/1.5 G
     Route: 065
     Dates: start: 20110721, end: 20110727
  11. SULTAMICILLIN [Concomitant]
     Active Substance: SULTAMICILLIN
     Route: 065
     Dates: start: 20110727
  12. IRINOTECAN [Suspect]
     Active Substance: IRINOTECAN
     Indication: GLIOBLASTOMA MULTIFORME
     Dosage: LAST DOSE PRIOR TO THE EVENT : 22 DECEMBER 2010, INFUSION
     Route: 042
     Dates: start: 20101125
  13. NOVALGIN [Concomitant]
     Active Substance: METAMIZOLE SODIUM
     Route: 065
  14. PANTOZOL [Concomitant]
     Active Substance: PANTOPRAZOLE SODIUM
     Route: 065
     Dates: start: 20110119

REACTIONS (1)
  - General physical health deterioration [Fatal]

NARRATIVE: CASE EVENT DATE: 20111213
